FAERS Safety Report 5815404-X (Version None)
Quarter: 2008Q3

REPORT INFORMATION
  Report Type: 
  Country: None (occurrence: None)
  Receive Date: 20080718
  Receipt Date: 20080708
  Transmission Date: 20090109
  Serious: Yes (Life-Threatening, Hospitalization, Other)
  Sender: FDA-Public Use
  Company Number: GB-PFIZER INC-2008056497

PATIENT
  Age: 74 Year
  Sex: Female

DRUGS (15)
  1. GABAPENTIN [Suspect]
     Indication: BACK PAIN
     Route: 048
     Dates: start: 20080528, end: 20080602
  2. ALENDRONIC ACID [Concomitant]
  3. ACETYLSALICYLIC ACID SRT [Concomitant]
  4. ATORVASTATIN CALCIUM [Concomitant]
  5. ATROVENT [Concomitant]
  6. BECLOMETHASONE DIPROPIONATE [Concomitant]
     Route: 055
  7. CIPROFLOXACIN [Concomitant]
  8. FENTANYL [Concomitant]
  9. FUROSEMIDE [Concomitant]
  10. LEVOTHYROXINE SODIUM [Concomitant]
  11. PREDNISOLONE [Concomitant]
  12. ALBUTEROL [Concomitant]
  13. SALMETEROL [Concomitant]
     Route: 055
  14. THEOPHYLLINE [Concomitant]
  15. ALL OTHER THERAPEUTIC PRODUCTS [Concomitant]

REACTIONS (2)
  - ESCHERICHIA SEPSIS [None]
  - NEUTROPENIA [None]
